FAERS Safety Report 9478619 (Version 2)
Quarter: 2013Q3

REPORT INFORMATION
  Report Type: Report from Study
  Country: CA (occurrence: CA)
  Receive Date: 20130827
  Receipt Date: 20130903
  Transmission Date: 20140515
  Serious: Yes (Other)
  Sender: FDA-Public Use
  Company Number: CA-JNJFOC-20130813474

PATIENT
  Age: 67 Year
  Sex: Female

DRUGS (14)
  1. SIMPONI [Suspect]
     Indication: RHEUMATOID ARTHRITIS
     Route: 058
     Dates: start: 20130702
  2. METHOTREXATE [Concomitant]
     Route: 048
  3. FOLIC ACID [Concomitant]
     Route: 065
  4. CALCIUM [Concomitant]
     Route: 048
  5. OMNARIS [Concomitant]
     Route: 055
  6. RISEDRONATE [Concomitant]
     Route: 048
  7. OMEPRAZOLE [Concomitant]
     Route: 048
  8. FLUOXETINE [Concomitant]
     Route: 048
  9. VENTOLIN [Concomitant]
     Route: 065
  10. ASMANEX [Concomitant]
     Route: 065
  11. JANUMET [Concomitant]
     Route: 065
  12. GLICLAZIDE [Concomitant]
     Route: 048
  13. ROSUVASTATIN [Concomitant]
     Route: 048
  14. LOSARTAN [Concomitant]
     Route: 048

REACTIONS (2)
  - Carpal tunnel syndrome [Unknown]
  - Postoperative wound infection [Recovered/Resolved]
